FAERS Safety Report 5398177-7 (Version None)
Quarter: 2007Q3

REPORT INFORMATION
  Report Type: 
  Country: None (occurrence: None)
  Receive Date: 20070726
  Receipt Date: 20070603
  Transmission Date: 20080115
  Serious: Yes (Hospitalization, Other)
  Sender: FDA-Public Use
  Company Number: US-PURDUE-USA_2007_0028366

PATIENT
  Sex: Male

DRUGS (1)
  1. OXYCONTIN [Suspect]
     Indication: BACK PAIN
     Dates: start: 19990916, end: 19991110

REACTIONS (7)
  - ANXIETY [None]
  - ARRHYTHMIA [None]
  - ASTHENIA [None]
  - DRUG WITHDRAWAL SYNDROME [None]
  - HALLUCINATION [None]
  - HOSPITALISATION [None]
  - LOSS OF CONSCIOUSNESS [None]
